FAERS Safety Report 13277625 (Version 1)
Quarter: 2017Q1

REPORT INFORMATION
  Report Type: Spontaneous
  Country: US (occurrence: US)
  Receive Date: 20170228
  Receipt Date: 20170228
  Transmission Date: 20170428
  Serious: Yes (Other)
  Sender: FDA-Public Use
  Company Number: US-PFIZER INC-2017084036

PATIENT
  Age: 70 Year
  Sex: Female

DRUGS (9)
  1. LASIX [Concomitant]
     Active Substance: FUROSEMIDE
     Dosage: 40 MG, UNK
  2. PROLIA [Concomitant]
     Active Substance: DENOSUMAB
     Dosage: UNK (SOL)
  3. PREDNISONE. [Concomitant]
     Active Substance: PREDNISONE
     Dosage: 1 MG, UNK
  4. PANTOPRAZOLE [Concomitant]
     Active Substance: PANTOPRAZOLE SODIUM
     Dosage: 20 MG, UNK
  5. XELJANZ XR [Suspect]
     Active Substance: TOFACITINIB CITRATE
     Indication: RHEUMATOID ARTHRITIS
     Dosage: 11 MG, DAILY
     Route: 048
     Dates: start: 201611, end: 20170101
  6. VITAMIN D3 [Concomitant]
     Active Substance: CHOLECALCIFEROL
     Dosage: 10000 IU, UNK
  7. TRAMADOL HCL [Concomitant]
     Active Substance: TRAMADOL HYDROCHLORIDE
     Dosage: 50 MG, UNK
  8. FORTEO [Concomitant]
     Active Substance: TERIPARATIDE
     Dosage: UNK, (SOL 600/2.4)
  9. SYNTHROID [Concomitant]
     Active Substance: LEVOTHYROXINE SODIUM
     Dosage: 125 UG, UNK

REACTIONS (2)
  - Osteonecrosis of jaw [Unknown]
  - Influenza [Unknown]
